FAERS Safety Report 19436973 (Version 2)
Quarter: 2021Q2

REPORT INFORMATION
  Report Type: Spontaneous
  Country: US (occurrence: US)
  Receive Date: 20210619
  Receipt Date: 20210627
  Transmission Date: 20210717
  Serious: Yes (Death, Hospitalization)
  Sender: FDA-Public Use
  Company Number: US-ABBVIE-21K-163-3957761-00

PATIENT
  Age: 82 Year
  Sex: Male
  Weight: 88.53 kg

DRUGS (1)
  1. IMBRUVICA [Suspect]
     Active Substance: IBRUTINIB
     Indication: NON-HODGKIN^S LYMPHOMA
     Route: 048
     Dates: start: 20210430, end: 20210524

REACTIONS (8)
  - Neutropenia [Fatal]
  - Thrombocytopenia [Fatal]
  - Cachexia [Unknown]
  - Sepsis [Fatal]
  - Renal failure [Fatal]
  - Asthenia [Unknown]
  - Weight decreased [Unknown]
  - Oedema [Unknown]

NARRATIVE: CASE EVENT DATE: 202105
